FAERS Safety Report 8562683-4 (Version None)
Quarter: 2012Q3

REPORT INFORMATION
  Report Type: 
  Country: None (occurrence: None)
  Receive Date: 20120802
  Receipt Date: 20120720
  Transmission Date: 20120928
  Serious: Yes (Hospitalization, Other)
  Sender: FDA-Public Use
  Company Number: US-ARROW-2012-13343

PATIENT
  Age: 65 Year
  Sex: Male

DRUGS (2)
  1. FLUOXETINE HCL [Suspect]
     Indication: SCHIZOAFFECTIVE DISORDER BIPOLAR TYPE
     Dosage: 20 MG, DAILY
     Route: 065
  2. DONEPEZIL HYDROCHLORIDE [Suspect]
     Indication: SCHIZOAFFECTIVE DISORDER BIPOLAR TYPE
     Dosage: 10 MG, QHS
     Route: 065

REACTIONS (3)
  - CHOLINERGIC SYNDROME [None]
  - DRUG INTERACTION [None]
  - ENZYME INHIBITION [None]
